FAERS Safety Report 8762834 (Version 2)
Quarter: 2012Q4

REPORT INFORMATION
  Report Type: 
  Country: CH (occurrence: CH)
  Receive Date: 20120830
  Receipt Date: 20120906
  Transmission Date: 20130627
  Serious: Yes (Hospitalization, Other)
  Sender: FDA-Public Use
  Company Number: CH-PFIZER INC-2012211020

PATIENT
  Age: 83 Year
  Sex: Female

DRUGS (9)
  1. RAMIPRIL [Suspect]
     Indication: HYPERTENSIVE HEART DISEASE
     Dosage: 1.25 mg, daily
     Route: 048
     Dates: end: 20120517
  2. RAMIPRIL [Suspect]
     Indication: NEPHROPATHY
  3. RAMIPRIL [Suspect]
     Indication: CARDIAC FAILURE CONGESTIVE
  4. NALOXONE HYDROCHLORIDE\OXYCODONE HYDROCHLORIDE [Suspect]
     Indication: PAIN
     Dosage: 10 mg, daily
     Route: 048
  5. METOPROLOL SUCCINATE [Suspect]
     Indication: ESSENTIAL HYPERTENSION
     Dosage: 25 mg, daily
     Route: 048
     Dates: end: 20120517
  6. PHENPROCOUMON [Concomitant]
     Dosage: UNK
  7. TORSEMIDE [Concomitant]
     Dosage: UNK
  8. CALCIUM D3 ^STADA^ [Concomitant]
     Dosage: UNK
  9. STILNOX [Concomitant]
     Dosage: UNK

REACTIONS (5)
  - Bradycardia [Recovered/Resolved]
  - Renal failure chronic [Recovered/Resolved]
  - Syncope [Recovered/Resolved]
  - Blood pressure diastolic decreased [Unknown]
  - Blood potassium increased [Unknown]
